FAERS Safety Report 22001020 (Version 1)
Quarter: 2023Q1

REPORT INFORMATION
  Report Type: Spontaneous
  Country: HR (occurrence: HR)
  Receive Date: 20230216
  Receipt Date: 20230216
  Transmission Date: 20230417
  Serious: Yes (Other)
  Sender: FDA-Public Use
  Company Number: HR-MLMSERVICE-20230131-4067367-1

PATIENT
  Age: 40 Year
  Sex: Female

DRUGS (2)
  1. MOXIFLOXACIN [Suspect]
     Active Substance: MOXIFLOXACIN
     Indication: COVID-19 pneumonia
     Dosage: UNK
     Route: 048
     Dates: start: 202104
  2. MAXITROL [Concomitant]
     Active Substance: DEXAMETHASONE\NEOMYCIN SULFATE\POLYMYXIN B SULFATE
     Indication: COVID-19 pneumonia
     Dosage: UNK
     Route: 048
     Dates: start: 202104

REACTIONS (2)
  - Iris transillumination defect [Unknown]
  - Off label use [None]

NARRATIVE: CASE EVENT DATE: 20210501
